FAERS Safety Report 8347424-8 (Version None)
Quarter: 2012Q2

REPORT INFORMATION
  Report Type: 
  Country: None (occurrence: None)
  Receive Date: 20120509
  Receipt Date: 20120430
  Transmission Date: 20120825
  Serious: Yes (Other)
  Sender: FDA-Public Use
  Company Number: GB-ROCHE-1064585

PATIENT
  Sex: Male
  Weight: 65 kg

DRUGS (2)
  1. MABTHERA [Suspect]
     Indication: PRODUCT USED FOR UNKNOWN INDICATION
     Dates: start: 20080326
  2. STEROID NOS [Concomitant]

REACTIONS (1)
  - BLADDER CANCER STAGE 0, WITH CANCER IN SITU [None]
